FAERS Safety Report 8789498 (Version 1)
Quarter: 2012Q4

REPORT INFORMATION
  Report Type: Spontaneous
  Country: US (occurrence: None)
  Receive Date: 20120910
  Receipt Date: 20120910
  Transmission Date: 20130627
  Serious: Yes (Hospitalization)
  Sender: FDA-Public Use
  Company Number: None

PATIENT
  Age: 66 Year
  Sex: Male
  Weight: 68.3 kg

DRUGS (6)
  1. CELECOXIB [Suspect]
     Indication: STAGE IV NON-SMALL CELL
     Route: 048
     Dates: start: 20111012, end: 20120813
  2. ZANTAC [Concomitant]
  3. ENOXAPARIN [Concomitant]
  4. NORCO [Concomitant]
  5. OXYCODONE [Concomitant]
  6. PROCHLORPERAZINE [Concomitant]

REACTIONS (9)
  - Malaise [None]
  - Back pain [None]
  - Nausea [None]
  - Vomiting [None]
  - Pain [None]
  - Constipation [None]
  - Decreased appetite [None]
  - Weight decreased [None]
  - Arthralgia [None]
